FAERS Safety Report 18717084 (Version 1)
Quarter: 2021Q1

REPORT INFORMATION
  Report Type: Report from Study
  Country: None (occurrence: AR)
  Receive Date: 20210108
  Receipt Date: 20210108
  Transmission Date: 20210419
  Serious: Yes (Other)
  Sender: FDA-Public Use
  Company Number: AR-ABBVIE-20K-007-3668926-00

PATIENT
  Sex: Male
  Weight: 70 kg

DRUGS (1)
  1. HUMIRA [Suspect]
     Active Substance: ADALIMUMAB
     Indication: RHEUMATOID ARTHRITIS
     Route: 058
     Dates: start: 20200116, end: 2020

REACTIONS (8)
  - Peripheral swelling [Not Recovered/Not Resolved]
  - Blood creatinine increased [Unknown]
  - Mouth ulceration [Recovered/Resolved]
  - Haematocrit decreased [Unknown]
  - Weight decreased [Recovered/Resolved]
  - Intestinal polyp [Unknown]
  - Diarrhoea [Not Recovered/Not Resolved]
  - Joint swelling [Not Recovered/Not Resolved]

NARRATIVE: CASE EVENT DATE: 2020
